FAERS Safety Report 5493594-9 (Version None)
Quarter: 2007Q4

REPORT INFORMATION
  Report Type: 
  Country: None (occurrence: None)
  Receive Date: 20071023
  Receipt Date: 20071012
  Transmission Date: 20080405
  Serious: Yes (Other)
  Sender: FDA-Public Use
  Company Number: US-JNJFOC-20071003955

PATIENT
  Sex: Female

DRUGS (4)
  1. MONISTAT 7 CREAM COMBO PACK W/PREFAPPL [Suspect]
     Route: 067
  2. MONISTAT 7 CREAM COMBO PACK W/PREFAPPL [Suspect]
     Indication: FUNGAL INFECTION
     Route: 067
  3. MONISTAT 7 CREAM COMBO PACK W/PREFAPPL [Suspect]
     Route: 061
  4. MONISTAT 7 CREAM COMBO PACK W/PREFAPPL [Suspect]
     Route: 061

REACTIONS (2)
  - MENORRHAGIA [None]
  - METRORRHAGIA [None]
